FAERS Safety Report 12487004 (Version 1)
Quarter: 2016Q2

REPORT INFORMATION
  Report Type: Spontaneous
  Country: US (occurrence: None)
  Receive Date: 20160621
  Receipt Date: 20160621
  Transmission Date: 20160815
  Serious: Yes (Other)
  Sender: FDA-Public Use
  Company Number: None

PATIENT
  Age: 47 Year
  Sex: Female
  Weight: 73.48 kg

DRUGS (5)
  1. DULOXETINE, 30 MG ELI LILLY [Suspect]
     Active Substance: DULOXETINE
     Indication: SCOLIOSIS
     Route: 048
     Dates: start: 20160601
  2. DULOXETINE, 30 MG ELI LILLY [Suspect]
     Active Substance: DULOXETINE
     Indication: INTERVERTEBRAL DISC DEGENERATION
     Route: 048
     Dates: start: 20160601
  3. GABAPENTIN. [Concomitant]
     Active Substance: GABAPENTIN
  4. DULOXETINE, 30 MG ELI LILLY [Suspect]
     Active Substance: DULOXETINE
     Indication: PAIN
     Route: 048
     Dates: start: 20160601
  5. FLUOXETINE [Concomitant]
     Active Substance: FLUOXETINE HYDROCHLORIDE

REACTIONS (8)
  - Malaise [None]
  - Dizziness [None]
  - Fatigue [None]
  - Lethargy [None]
  - Affective disorder [None]
  - Paraesthesia [None]
  - Pain threshold decreased [None]
  - Mental impairment [None]

NARRATIVE: CASE EVENT DATE: 20160601
